FAERS Safety Report 12702978 (Version 2)
Quarter: 2016Q4

REPORT INFORMATION
  Report Type: Spontaneous
  Country: US (occurrence: US)
  Receive Date: 20160831
  Receipt Date: 20161121
  Transmission Date: 20170207
  Serious: Yes (Other)
  Sender: FDA-Public Use
  Company Number: US-BAYER-2016-164485

PATIENT
  Sex: Male
  Weight: 122.4 kg

DRUGS (9)
  1. LEVOFLOXACIN. [Suspect]
     Active Substance: LEVOFLOXACIN
     Indication: SALMONELLOSIS
     Dosage: 500 MG, UNK
     Dates: start: 20121217, end: 20121217
  2. VITAMIN D [Concomitant]
     Active Substance: CHOLECALCIFEROL
  3. LOVASTATIN. [Concomitant]
     Active Substance: LOVASTATIN
  4. CYCLOBENZAPRINE [Concomitant]
     Active Substance: CYCLOBENZAPRINE
  5. VOLTAREN [Concomitant]
     Active Substance: DICLOFENAC SODIUM
  6. LYRICA [Concomitant]
     Active Substance: PREGABALIN
  7. AVELOX [Suspect]
     Active Substance: MOXIFLOXACIN HYDROCHLORIDE
     Dosage: 400 MG, UNK
     Dates: start: 20090107, end: 20090107
  8. CIPROFLOXACIN. [Suspect]
     Active Substance: CIPROFLOXACIN
     Dosage: 500 MG, UNK
     Dates: start: 20120511, end: 20120511
  9. MOBIC [Concomitant]
     Active Substance: MELOXICAM

REACTIONS (5)
  - Generalised anxiety disorder [None]
  - Neuropathy peripheral [None]
  - Pain [None]
  - Depression [None]
  - Impulse-control disorder [None]
